FAERS Safety Report 7424327-4 (Version None)
Quarter: 2011Q2

REPORT INFORMATION
  Report Type: 
  Country: None (occurrence: None)
  Receive Date: 20110405
  Receipt Date: 20110401
  Transmission Date: 20111010
  Serious: Yes (Other)
  Sender: FDA-Public Use
  Company Number: JHP201100045

PATIENT
  Age: 40 Year
  Sex: Male

DRUGS (1)
  1. APLISOL [Suspect]
     Indication: TUBERCULIN TEST
     Dosage: 0.1 ML, SINGLE, INTRADERMAL
     Route: 023
     Dates: start: 20110218, end: 20110218

REACTIONS (8)
  - FEELING HOT [None]
  - SKIN BACTERIAL INFECTION [None]
  - PRODUCT CONTAMINATION MICROBIAL [None]
  - INJECTION SITE HAEMATOMA [None]
  - INJECTION SITE PAIN [None]
  - LYMPHADENITIS [None]
  - INJECTION SITE ERYTHEMA [None]
  - NEEDLE ISSUE [None]
